FAERS Safety Report 5201911-X (Version None)
Quarter: 2006Q4

REPORT INFORMATION
  Report Type: 
  Country: None (occurrence: None)
  Receive Date: 20061010
  Receipt Date: 20060321
  Transmission Date: 20070319
  Serious: Yes (Other)
  Sender: FDA-Public Use
  Company Number: 2006-03-1445

PATIENT

DRUGS (2)
  1. TEMODAR [Suspect]
     Indication: DRUG USE FOR UNKNOWN INDICATION
     Dosage: UNKNOWN ORAL
     Route: 048
  2. RADIATION THERAPY [Suspect]

REACTIONS (1)
  - THROMBOCYTOPENIA [None]
